FAERS Safety Report 9366741 (Version 1)
Quarter: 2013Q2

REPORT INFORMATION
  Report Type: Spontaneous
  Country: JP (occurrence: None)
  Receive Date: 20130620
  Receipt Date: 20130620
  Transmission Date: 20140414
  Serious: Yes (Hospitalization)
  Sender: FDA-Public Use
  Company Number: VAL_02596_2013

PATIENT
  Sex: 0

DRUGS (3)
  1. PARLODEL [Suspect]
     Indication: PARKINSONISM
     Dosage: (2.5 MG, QD, DAILY AFTER MEALS, ORAL)
     Route: 048
  2. ANTIPSYCHOTICS [Concomitant]
  3. ANTI-PARKINSON DRUG [Concomitant]

REACTIONS (2)
  - Parkinsonism [None]
  - Wrong technique in drug usage process [None]
